FAERS Safety Report 8864948 (Version 1)
Quarter: 2012Q4

REPORT INFORMATION
  Report Type: 
  Country: US (occurrence: US)
  Receive Date: 20121024
  Receipt Date: 20121024
  Transmission Date: 20130627
  Serious: No
  Sender: FDA-Public Use
  Company Number: US-AMGEN-USASP2012000345

PATIENT
  Age: 32 Year
  Sex: Male
  Weight: 131.52 kg

DRUGS (5)
  1. ENBREL [Suspect]
     Indication: PRODUCT USED FOR UNKNOWN INDICATION
     Dosage: 50 mg, qwk
  2. ASPIRIN [Concomitant]
     Dosage: 81 mg, UNK
  3. OMEPRAZOLE [Concomitant]
     Dosage: 20 mg, UNK
  4. ALEVE [Concomitant]
     Dosage: 220 mg, UNK
  5. HUMIRA [Concomitant]
     Dosage: 40 mg, UNK

REACTIONS (1)
  - Drug ineffective [Unknown]
